FAERS Safety Report 13649660 (Version 2)
Quarter: 2018Q1

REPORT INFORMATION
  Report Type: Spontaneous
  Country: AU (occurrence: AU)
  Receive Date: 20170614
  Receipt Date: 20180118
  Transmission Date: 20180508
  Serious: Yes (Other)
  Sender: FDA-Public Use
  Company Number: AU-APOTEX-2017AP012849

PATIENT
  Age: 59 Year
  Sex: Male

DRUGS (7)
  1. FLUDROCORTISONE [Concomitant]
     Active Substance: FLUDROCORTISONE
     Indication: ORTHOSTATIC HYPERTENSION
     Dosage: UNK
     Route: 065
  2. APO-PRAMIPEXOLE [Suspect]
     Active Substance: PRAMIPEXOLE
     Dosage: 0.125 MG, DAILY
     Route: 065
  3. APO-MIRTAZAPINE [Suspect]
     Active Substance: MIRTAZAPINE
     Indication: PRODUCT USED FOR UNKNOWN INDICATION
     Dosage: 360 MG, UNK
     Route: 048
  4. APO-VENLAFXAINE XR [Suspect]
     Active Substance: VENLAFAXINE HYDROCHLORIDE
     Indication: PRODUCT USED FOR UNKNOWN INDICATION
     Dosage: 2250 MG, UNK
     Route: 048
  5. APO-VENLAFXAINE XR [Suspect]
     Active Substance: VENLAFAXINE HYDROCHLORIDE
     Dosage: 150 MG, QD
     Route: 065
  6. APO-MIRTAZAPINE [Suspect]
     Active Substance: MIRTAZAPINE
     Dosage: 15 MG, QD
     Route: 065
  7. APO-PRAMIPEXOLE [Suspect]
     Active Substance: PRAMIPEXOLE
     Indication: RESTLESS LEGS SYNDROME
     Dosage: 3 MG, UNK
     Route: 048

REACTIONS (22)
  - Dysuria [Recovering/Resolving]
  - Sinus tachycardia [Recovering/Resolving]
  - Suicidal ideation [Unknown]
  - Heart rate increased [Recovering/Resolving]
  - Condition aggravated [Recovered/Resolved]
  - Hallucination, visual [Recovered/Resolved]
  - Hypervigilance [Recovering/Resolving]
  - Ataxia [Recovering/Resolving]
  - Blood lactic acid increased [Recovering/Resolving]
  - Agitation [Recovered/Resolved]
  - Toxicity to various agents [Unknown]
  - Balance disorder [Recovered/Resolved]
  - Confusional state [Recovering/Resolving]
  - Dizziness [Recovered/Resolved]
  - Urinary retention [Recovered/Resolved]
  - Hyperreflexia [Recovering/Resolving]
  - Blood glucose increased [Recovering/Resolving]
  - Overdose [Unknown]
  - Myoclonus [Recovered/Resolved]
  - Feeling jittery [Recovering/Resolving]
  - Pressure of speech [Recovering/Resolving]
  - Disturbance in attention [Recovering/Resolving]
